FAERS Safety Report 13913896 (Version 1)
Quarter: 2017Q3

REPORT INFORMATION
  Report Type: Spontaneous
  Country: US (occurrence: None)
  Receive Date: 20170827
  Receipt Date: 20170827
  Transmission Date: 20171127
  Serious: Yes (Hospitalization)
  Sender: FDA-Public Use
  Company Number: None

PATIENT
  Age: 33 Year
  Sex: Male
  Weight: 97.07 kg

DRUGS (2)
  1. AZITHROMYCIN ANHYDROUS. [Suspect]
     Active Substance: AZITHROMYCIN ANHYDROUS
     Indication: INFECTION
     Route: 048
     Dates: start: 20170613, end: 20170618
  2. TOPIRAMATE. [Suspect]
     Active Substance: TOPIRAMATE
     Indication: MIGRAINE PROPHYLAXIS
     Route: 048
     Dates: start: 20170612, end: 20170618

REACTIONS (8)
  - Vitamin B12 deficiency [None]
  - Pyrexia [None]
  - Cough [None]
  - Rash [None]
  - White blood cell count increased [None]
  - Dyspnoea exertional [None]
  - Fatigue [None]
  - Haemolytic anaemia [None]

NARRATIVE: CASE EVENT DATE: 20170622
